FAERS Safety Report 4733648-5 (Version None)
Quarter: 2005Q3

REPORT INFORMATION
  Report Type: 
  Country: None (occurrence: None)
  Receive Date: 20050721
  Receipt Date: 20050517
  Transmission Date: 20060218
  Serious: No
  Sender: FDA-Public Use
  Company Number: 2005SP000844

PATIENT
  Age: 67 Year
  Sex: Female
  Weight: 78.0187 kg

DRUGS (10)
  1. LUNESTA [Suspect]
     Indication: INSOMNIA
     Dosage: 2 MG;HS;ORAL
     Route: 048
     Dates: start: 20050509
  2. LUNESTA [Suspect]
     Indication: PAIN
     Dosage: 2 MG;HS;ORAL
     Route: 048
     Dates: start: 20050509
  3. AMBIEN [Concomitant]
  4. DARVOCET-N 100 [Concomitant]
  5. PRILOSEC [Concomitant]
  6. DONNATAL [Concomitant]
  7. LORAZEPAM [Concomitant]
  8. COZAAR [Concomitant]
  9. SYNTHROID [Concomitant]
  10. PLAVIX [Concomitant]

REACTIONS (2)
  - DYSGEUSIA [None]
  - INSOMNIA [None]
